FAERS Safety Report 6635009-0 (Version None)
Quarter: 2010Q1

REPORT INFORMATION
  Report Type: 
  Country: None (occurrence: None)
  Receive Date: 20100315
  Receipt Date: 20100308
  Transmission Date: 20100710
  Serious: Yes (Other)
  Sender: FDA-Public Use
  Company Number: CA-B.I. PHARMACEUTICALS,INC./RIDGEFIELD-2010-CN-00154CN

PATIENT
  Age: 58 Year
  Sex: Female
  Weight: 70.8 kg

DRUGS (8)
  1. MIRAPEX [Suspect]
     Dosage: 2 EVERY 1 DAY(S)
     Route: 048
  2. ACYCLOVIR [Concomitant]
     Route: 065
  3. ATENOLOL [Concomitant]
     Route: 065
  4. DIDRONEL [Concomitant]
     Route: 065
  5. GLEEVEC [Concomitant]
     Route: 065
  6. METAMUCIL-2 [Concomitant]
     Route: 065
  7. MODURET [Concomitant]
     Route: 065
  8. PARIET [Concomitant]
     Route: 065

REACTIONS (6)
  - COMPULSIVE SHOPPING [None]
  - ECONOMIC PROBLEM [None]
  - OEDEMA [None]
  - PATHOLOGICAL GAMBLING [None]
  - SLEEP ATTACKS [None]
  - TACHYCARDIA [None]
